FAERS Safety Report 6233213-7 (Version None)
Quarter: 2009Q2

REPORT INFORMATION
  Report Type: 
  Country: None (occurrence: None)
  Receive Date: 20090617
  Receipt Date: 20090612
  Transmission Date: 20091009
  Serious: Yes (Life-Threatening, Hospitalization, Other)
  Sender: FDA-Public Use
  Company Number: PHEH2009US05502

PATIENT
  Sex: Male
  Weight: 78 kg

DRUGS (10)
  1. SIMULECT [Suspect]
     Indication: RENAL TRANSPLANT
     Dosage: 20 MG, ONCE/SINGLE
     Route: 042
     Dates: start: 20090515, end: 20090515
  2. SIMULECT [Suspect]
     Dosage: 20 MG, ONCE/SINGLE
     Route: 042
     Dates: start: 20090520
  3. SOLU-MEDROL [Concomitant]
  4. CELLCEPT [Concomitant]
  5. DILTIAZEM [Concomitant]
  6. BACTRIM [Concomitant]
  7. MYCELEX [Concomitant]
  8. METOPROLOL SUCCINATE [Concomitant]
  9. ZANTAC [Concomitant]
  10. SIMVASTATIN [Concomitant]

REACTIONS (6)
  - ACUTE MYOCARDIAL INFARCTION [None]
  - COMPLICATIONS OF TRANSPLANTED KIDNEY [None]
  - FLUID OVERLOAD [None]
  - HYPOXIA [None]
  - PULMONARY OEDEMA [None]
  - RESPIRATORY DISORDER [None]
